FAERS Safety Report 24441361 (Version 1)
Quarter: 2024Q4

REPORT INFORMATION
  Report Type: Report from Study
  Country: BR (occurrence: BR)
  Receive Date: 20241016
  Receipt Date: 20241016
  Transmission Date: 20250115
  Serious: Yes (Other)
  Sender: JOHNSON AND JOHNSON
  Company Number: BR-JNJFOC-20241032359

PATIENT
  Age: 79 Year
  Sex: Female
  Weight: 78 kg

DRUGS (1)
  1. INFLIXIMAB [Suspect]
     Active Substance: INFLIXIMAB
     Indication: Ankylosing spondylitis
     Route: 041
     Dates: start: 20240326

REACTIONS (4)
  - Loss of consciousness [Unknown]
  - Chest pain [Unknown]
  - Blood pressure inadequately controlled [Unknown]
  - Malaise [Unknown]

NARRATIVE: CASE EVENT DATE: 20240409
